FAERS Safety Report 4541123-6 (Version None)
Quarter: 2004Q4

REPORT INFORMATION
  Report Type: 
  Country: None (occurrence: None)
  Receive Date: 20041228
  Receipt Date: 20040729
  Transmission Date: 20050328
  Serious: Yes (Hospitalization)
  Sender: FDA-Public Use
  Company Number: F01200402284

PATIENT
  Age: 59 Year
  Sex: Female

DRUGS (3)
  1. (OXALIPLATIN) - SOLUTION - 85 MG/M2 [Suspect]
     Indication: COLORECTAL CANCER
  2. FLUOROURACIL [Suspect]
  3. LEUCOVORIN - SOLUTION - 350 MG [Suspect]

REACTIONS (4)
  - DIARRHOEA [None]
  - INTESTINAL PERFORATION [None]
  - NAUSEA [None]
  - VOMITING [None]
